FAERS Safety Report 8537203-0 (Version None)
Quarter: 2012Q3

REPORT INFORMATION
  Report Type: 
  Country: None (occurrence: None)
  Receive Date: 20120725
  Receipt Date: 20120716
  Transmission Date: 20120928
  Serious: Yes (Death)
  Sender: FDA-Public Use
  Company Number: AU-ACTELION-A-CH2012-68735

PATIENT
  Sex: Female

DRUGS (12)
  1. SILDENAFIL [Concomitant]
  2. TRACLEER [Suspect]
     Indication: PULMONARY ARTERIAL HYPERTENSION
     Dosage: 125 MG, BID
     Route: 048
     Dates: start: 20070204, end: 20120707
  3. TELMISARTAN [Concomitant]
  4. FLUTICASONE PROPIONATE/SALMETEROL [Concomitant]
  5. LANTUS [Concomitant]
  6. PANTOPRAZOLE [Concomitant]
  7. METFORMIN HYDROCHLORIDE [Concomitant]
  8. SPIRIVA [Concomitant]
  9. LASIX [Concomitant]
  10. ALBUTEROL SULATE [Concomitant]
  11. SOTALOL HYDROCHLORIDE [Concomitant]
  12. TRACLEER [Suspect]
     Dosage: 62.5 MG, BID
     Route: 048
     Dates: start: 20070104, end: 20070203

REACTIONS (3)
  - ANAEMIA [None]
  - GENERAL PHYSICAL HEALTH DETERIORATION [None]
  - OVARIAN CANCER [None]
